FAERS Safety Report 4285279-1 (Version None)
Quarter: 2004Q1

REPORT INFORMATION
  Report Type: 
  Country: None (occurrence: None)
  Receive Date: 20040202
  Receipt Date: 20040121
  Transmission Date: 20041129
  Serious: Yes (Other)
  Sender: FDA-Public Use
  Company Number: FR-JNJFOC-20031105228

PATIENT
  Age: 49 Year
  Sex: Female
  Weight: 86 kg

DRUGS (10)
  1. REMICADE [Suspect]
     Indication: RHEUMATOID ARTHRITIS
     Dosage: SEE IMAGE
     Route: 042
     Dates: start: 20030911, end: 20030911
  2. REMICADE [Suspect]
     Indication: RHEUMATOID ARTHRITIS
     Dosage: SEE IMAGE
     Route: 042
     Dates: start: 20030926, end: 20030926
  3. REMICADE [Suspect]
     Indication: RHEUMATOID ARTHRITIS
     Dosage: SEE IMAGE
     Route: 042
     Dates: start: 20031027, end: 20031027
  4. REMICADE [Suspect]
     Indication: RHEUMATOID ARTHRITIS
     Dosage: SEE IMAGE
     Route: 042
     Dates: start: 20031224, end: 20031224
  5. NSAID (NSAID'S) [Concomitant]
  6. CORTICOSTEROIDS (CORTICOSTEROIDS) [Concomitant]
  7. METHOTREXATE [Concomitant]
  8. PREDNISONE [Concomitant]
  9. SPECIAFOLDINE (FOLIC ACID) TABLETS [Concomitant]
  10. RANITIDINE [Concomitant]

REACTIONS (4)
  - AFFECTIVE DISORDER [None]
  - ANXIETY [None]
  - BULIMIA NERVOSA [None]
  - DEPRESSION [None]
